FAERS Safety Report 5119837-9 (Version None)
Quarter: 2006Q3

REPORT INFORMATION
  Report Type: 
  Country: None (occurrence: None)
  Receive Date: 20060929
  Receipt Date: 20060920
  Transmission Date: 20061208
  Serious: Yes (Death)
  Sender: FDA-Public Use
  Company Number: 2006S1007360

PATIENT
  Age: 71 Year
  Sex: Male

DRUGS (9)
  1. CLOZAPINE [Suspect]
     Dosage: 100 MG BID SC
     Route: 058
     Dates: end: 20060711
  2. LORAZEPAM [Concomitant]
  3. ZYPREXA [Concomitant]
  4. DIPHENHYDRAMINE HCL [Concomitant]
  5. XOPENEX [Concomitant]
  6. ZELNORM [Concomitant]
  7. ADVAIR DISKUS 100/50 [Concomitant]
  8. ALBUTEROL [Concomitant]
  9. SPIRIVA [Concomitant]

REACTIONS (1)
  - DEATH [None]
